FAERS Safety Report 12833225 (Version 1)
Quarter: 2016Q4

REPORT INFORMATION
  Report Type: Spontaneous
  Country: US (occurrence: US)
  Receive Date: 20161010
  Receipt Date: 20161010
  Transmission Date: 20170207
  Serious: No
  Sender: FDA-Public Use
  Company Number: US-TEVA-694460USA

PATIENT
  Sex: Female

DRUGS (1)
  1. PROVIGIL [Suspect]
     Active Substance: MODAFINIL
     Dosage: ^ONE IN THE MORNING AND ONE IN THE EVENING^
     Route: 065

REACTIONS (2)
  - Drug prescribing error [Unknown]
  - Product use issue [Unknown]
